FAERS Safety Report 5707331-3 (Version None)
Quarter: 2008Q2

REPORT INFORMATION
  Report Type: 
  Country: None (occurrence: None)
  Receive Date: 20080416
  Receipt Date: 20080408
  Transmission Date: 20081010
  Serious: Yes (Other)
  Sender: FDA-Public Use
  Company Number: JP-ROCHE-549434

PATIENT
  Sex: Male
  Weight: 17 kg

DRUGS (5)
  1. TAMIFLU [Suspect]
     Dosage: FORMULATION: DRY SYRUP.
     Route: 048
     Dates: start: 20080115, end: 20080115
  2. PERIACTIN [Concomitant]
     Dosage: FORMULATION: ORAL FORMULATION NOT OTHERWISE SPECIFIED.
     Route: 048
  3. BIOFERMIN [Concomitant]
     Dosage: FORMULATION: ORAL FORMULATION (NOT OTHERWISE SPECIFIED).
     Route: 048
  4. BIOFERMIN [Concomitant]
     Dosage: FORMULATION: ORAL FORMULATION (NOT OTHERWISE SPECIFIED).
     Route: 048
  5. BIOFERMIN [Concomitant]
     Dosage: FORMULATION: ORAL FORMULATION (NOT OTHERWISE SPECIFIED).
     Route: 048

REACTIONS (1)
  - DELIRIUM [None]
